FAERS Safety Report 14925057 (Version 1)
Quarter: 2018Q2

REPORT INFORMATION
  Report Type: Spontaneous
  Country: US (occurrence: US)
  Receive Date: 20180522
  Receipt Date: 20180522
  Transmission Date: 20180711
  Serious: No
  Sender: FDA-Public Use
  Company Number: US-NOVOPROD-543451

PATIENT
  Sex: Female

DRUGS (1)
  1. NORDITROPIN [Suspect]
     Active Substance: SOMATROPIN
     Indication: HUMAN CHORIONIC GONADOTROPIN DECREASED
     Dosage: UNK
     Route: 058

REACTIONS (3)
  - Product use in unapproved indication [Unknown]
  - Swelling [Unknown]
  - Arthralgia [Unknown]
